FAERS Safety Report 5528102-7 (Version None)
Quarter: 2007Q4

REPORT INFORMATION
  Report Type: 
  Country: None (occurrence: None)
  Receive Date: 20071128
  Receipt Date: 20071114
  Transmission Date: 20080405
  Serious: Yes (Other)
  Sender: FDA-Public Use
  Company Number: US-RANBAXY-2007RR-11472

PATIENT

DRUGS (6)
  1. CODEINE SUL TAB [Suspect]
     Indication: PNEUMONIA
     Route: 064
  2. PHENOBARBITAL TAB [Concomitant]
  3. LORAZEPAM [Concomitant]
  4. ACYCLOVIR [Concomitant]
  5. AMPICILLIN [Concomitant]
  6. GENTAMICIN [Concomitant]

REACTIONS (2)
  - CEREBRAL INFARCTION [None]
  - DRUG WITHDRAWAL SYNDROME NEONATAL [None]
